FAERS Safety Report 8574965-0 (Version None)
Quarter: 2012Q2

REPORT INFORMATION
  Report Type: 
  Country: None (occurrence: None)
  Receive Date: 20120423
  Receipt Date: 20100930
  Transmission Date: 20120825
  Serious: Yes (Death)
  Sender: FDA-Public Use
  Company Number: PHEH2010US03819

PATIENT
  Age: 79 Year
  Sex: Male

DRUGS (1)
  1. EXJADE [Suspect]
     Dosage: 1500 MG, UNK, UNKNOWN 1000 MG, UNK
     Dates: start: 20100601

REACTIONS (2)
  - DEATH [None]
  - RASH [None]
